FAERS Safety Report 24341086 (Version 1)
Quarter: 2024Q3

REPORT INFORMATION
  Report Type: Spontaneous
  Country: JP (occurrence: JP)
  Receive Date: 20240919
  Receipt Date: 20240919
  Transmission Date: 20241017
  Serious: Yes (Other)
  Sender: CSL BEHRING
  Company Number: JP-BEH-2024178902

PATIENT
  Sex: Male

DRUGS (1)
  1. PRIVIGEN [Suspect]
     Active Substance: HUMAN IMMUNOGLOBULIN G
     Indication: Immune thrombocytopenia
     Dosage: UNK
     Route: 064

REACTIONS (3)
  - Platelet count decreased [Unknown]
  - Haemorrhagic diathesis [Unknown]
  - Foetal exposure during pregnancy [Unknown]
